FAERS Safety Report 4865096-1 (Version None)
Quarter: 2005Q4

REPORT INFORMATION
  Report Type: 
  Country: None (occurrence: None)
  Receive Date: 20051223
  Receipt Date: 20051212
  Transmission Date: 20060501
  Serious: Yes (Other)
  Sender: FDA-Public Use
  Company Number: PHBS2005BR18394

PATIENT
  Age: 60 Year
  Sex: Female
  Weight: 46 kg

DRUGS (2)
  1. TOFRANIL [Suspect]
     Indication: DEPRESSION
     Dosage: 20 MG, QHS
     Route: 048
     Dates: start: 20051116, end: 20051212
  2. DORMONID [Concomitant]
     Indication: INSOMNIA
     Dosage: 2 DF, QHS
     Route: 048
     Dates: start: 19900101

REACTIONS (10)
  - ANXIETY [None]
  - BLINDNESS [None]
  - CONVULSION [None]
  - DRY MOUTH [None]
  - FEELING ABNORMAL [None]
  - HEADACHE [None]
  - HEART RATE INCREASED [None]
  - TACHYCARDIA [None]
  - TREMOR [None]
  - VERTIGO [None]
